FAERS Safety Report 6980110-5 (Version None)
Quarter: 2010Q3

REPORT INFORMATION
  Report Type: 
  Country: None (occurrence: None)
  Receive Date: 20100908
  Receipt Date: 20100824
  Transmission Date: 20110219
  Serious: Yes (Other)
  Sender: FDA-Public Use
  Company Number: AUR-APL-2010-02165

PATIENT
  Age: 65 Year
  Sex: Male

DRUGS (6)
  1. CARVEDILOL [Suspect]
     Indication: HEART RATE INCREASED
     Dosage: 12.5MG
  2. REVATIO FILM-COATED TABLET [Suspect]
     Indication: PULMONARY ARTERIAL HYPERTENSION
     Dosage: 20MG, TID
  3. CLEXANE 0.9 ML [Concomitant]
  4. XIPAMIDE 10MG [Concomitant]
  5. TORASEMIDE 20MG [Concomitant]
  6. PHENPROCOUMON [Concomitant]

REACTIONS (1)
  - ERECTILE DYSFUNCTION [None]
